FAERS Safety Report 13724589 (Version 1)
Quarter: 2017Q3

REPORT INFORMATION
  Report Type: Spontaneous
  Country: US (occurrence: US)
  Receive Date: 20170706
  Receipt Date: 20170706
  Transmission Date: 20171127
  Serious: No
  Sender: FDA-Public Use
  Company Number: US-BAYER-2017-127856

PATIENT
  Age: 70 Year
  Sex: Female
  Weight: 53.97 kg

DRUGS (1)
  1. MIRALAX [Suspect]
     Active Substance: POLYETHYLENE GLYCOL 3350
     Indication: GASTROINTESTINAL DISORDER
     Dosage: 17 GRAMS DOSE DAILY
     Route: 048
     Dates: start: 2017, end: 20170703

REACTIONS (6)
  - Inappropriate prescribing [Unknown]
  - Flatulence [Unknown]
  - Circumstance or information capable of leading to medication error [Unknown]
  - Incorrect drug administration duration [Unknown]
  - Headache [None]
  - Diarrhoea [Recovered/Resolved with Sequelae]

NARRATIVE: CASE EVENT DATE: 20170628
